FAERS Safety Report 13631211 (Version 2)
Quarter: 2017Q2

REPORT INFORMATION
  Report Type: Spontaneous
  Country: IT (occurrence: IT)
  Receive Date: 20170608
  Receipt Date: 20170613
  Transmission Date: 20170830
  Serious: Yes (Death)
  Sender: FDA-Public Use
  Company Number: IT-PFIZER INC-2017245749

PATIENT
  Age: 64 Year
  Sex: Male

DRUGS (1)
  1. FENTANEST [Suspect]
     Active Substance: FENTANYL CITRATE
     Dosage: 1.53 MG PER 35 ML
     Route: 042

REACTIONS (2)
  - Completed suicide [Fatal]
  - Toxicity to various agents [Fatal]
